FAERS Safety Report 12506278 (Version 1)
Quarter: 2016Q2

REPORT INFORMATION
  Report Type: Spontaneous
  Country: DE (occurrence: DE)
  Receive Date: 20160628
  Receipt Date: 20160628
  Transmission Date: 20160815
  Serious: Yes (Other)
  Sender: FDA-Public Use
  Company Number: DE-ASTRAZENECA-2016SE67948

PATIENT
  Sex: Male
  Weight: 2.2 kg

DRUGS (2)
  1. BELOC ZOK MITE [Suspect]
     Active Substance: METOPROLOL SUCCINATE
     Indication: SINUS TACHYCARDIA
     Dosage: 95 [MG/ ]/ DOSAGE BETWEEN 71.25 AND 95 MG/D (MORNING 47.5 MG; EVENING BETWEEN 23.75 AND 47.5)
     Route: 064
     Dates: start: 20150525, end: 20160215
  2. FEMIBION SCHWANGERSCHAFT 1 [Concomitant]
     Indication: PROPHYLAXIS
     Route: 064
     Dates: start: 20150525, end: 20160215

REACTIONS (1)
  - Small for dates baby [Recovered/Resolved]

NARRATIVE: CASE EVENT DATE: 20160215
